FAERS Safety Report 12285407 (Version 3)
Quarter: 2016Q2

REPORT INFORMATION
  Report Type: Report from Study
  Country: CA (occurrence: CA)
  Receive Date: 20160420
  Receipt Date: 20160429
  Transmission Date: 20160815
  Serious: Yes (Other)
  Sender: FDA-Public Use
  Company Number: CA-ROCHE-1672587

PATIENT
  Sex: Female

DRUGS (16)
  1. FUROSEMIDE. [Concomitant]
     Active Substance: FUROSEMIDE
  2. LANSOPRAZOLE. [Concomitant]
     Active Substance: LANSOPRAZOLE
  3. TRAMADOL HYDROCHLORIDE. [Concomitant]
     Active Substance: TRAMADOL HYDROCHLORIDE
  4. METHOTREXATE [Concomitant]
     Active Substance: METHOTREXATE
  5. AZATHIOPRINE. [Concomitant]
     Active Substance: AZATHIOPRINE
  6. BISOPROLOL FUMARATE. [Concomitant]
     Active Substance: BISOPROLOL FUMARATE
  7. IRBESARTAN. [Concomitant]
     Active Substance: IRBESARTAN
  8. VITAMIN B12 [Concomitant]
     Active Substance: CYANOCOBALAMIN
  9. FOLIC ACID. [Concomitant]
     Active Substance: FOLIC ACID
  10. IMURAN [Concomitant]
     Active Substance: AZATHIOPRINE
  11. PREDNISONE. [Concomitant]
     Active Substance: PREDNISONE
     Route: 065
  12. ACTEMRA [Suspect]
     Active Substance: TOCILIZUMAB
     Indication: TEMPORAL ARTERITIS
     Route: 042
     Dates: start: 20151104
  13. LEVOTHYROXINE. [Concomitant]
     Active Substance: LEVOTHYROXINE
  14. CYMBALTA [Concomitant]
     Active Substance: DULOXETINE HYDROCHLORIDE
  15. CELEBREX [Concomitant]
     Active Substance: CELECOXIB
  16. PREDNISONE. [Concomitant]
     Active Substance: PREDNISONE
     Route: 065

REACTIONS (11)
  - Frustration tolerance decreased [Unknown]
  - Off label use [Unknown]
  - Arthropathy [Unknown]
  - Muscular weakness [Recovering/Resolving]
  - Diarrhoea [Not Recovered/Not Resolved]
  - Abdominal pain [Not Recovered/Not Resolved]
  - Fall [Unknown]
  - Joint injury [Unknown]
  - Arthralgia [Unknown]
  - Therapeutic response decreased [Unknown]
  - Lower limb fracture [Unknown]
